FAERS Safety Report 18869062 (Version 2)
Quarter: 2021Q2

REPORT INFORMATION
  Report Type: Spontaneous
  Country: US (occurrence: US)
  Receive Date: 20210209
  Receipt Date: 20210420
  Transmission Date: 20210717
  Serious: Yes (Other)
  Sender: FDA-Public Use
  Company Number: US-ROCHE-2763991

PATIENT
  Age: 48 Year
  Sex: Male
  Weight: 75.7 kg

DRUGS (2)
  1. ACTEMRA [Suspect]
     Active Substance: TOCILIZUMAB
     Indication: TAKAYASU^S ARTERITIS
     Route: 058
     Dates: start: 20190619, end: 202009
  2. PREDNISONE. [Concomitant]
     Active Substance: PREDNISONE
     Indication: HYPER IGD SYNDROME
     Dosage: TAKES 2?10MG TABLETS ONCE DAILY
     Route: 048
     Dates: start: 20201006

REACTIONS (2)
  - Chronic inflammatory demyelinating polyradiculoneuropathy [Not Recovered/Not Resolved]
  - Intentional product use issue [Unknown]

NARRATIVE: CASE EVENT DATE: 202005
